FAERS Safety Report 4855556-1 (Version None)
Quarter: 2005Q4

REPORT INFORMATION
  Report Type: 
  Country: None (occurrence: None)
  Receive Date: 20051216
  Receipt Date: 20051213
  Transmission Date: 20060501
  Serious: Yes (Hospitalization)
  Sender: FDA-Public Use
  Company Number: 2005UW18695

PATIENT
  Age: 72 Year
  Sex: Male

DRUGS (2)
  1. IRESSA [Suspect]
     Route: 048
     Dates: start: 20051001, end: 20051211
  2. CIPRA [Concomitant]
     Indication: LUNG INFECTION

REACTIONS (1)
  - RENAL FAILURE [None]
